FAERS Safety Report 8795980 (Version 1)
Quarter: 2012Q4

REPORT INFORMATION
  Report Type: 
  Country: US (occurrence: US)
  Receive Date: 20120920
  Receipt Date: 20120920
  Transmission Date: 20130627
  Serious: Yes (Death, Hospitalization, Other)
  Sender: FDA-Public Use
  Company Number: US-PURDUE-USA-2012-0092780

PATIENT
  Age: 52 Year
  Sex: Male

DRUGS (2)
  1. OXYCONTIN TABLETS [Suspect]
     Indication: BACK PAIN
  2. MORPHINE SULFATE (SIMILAR TO NDA 19-516) [Suspect]
     Indication: BACK PAIN

REACTIONS (9)
  - Accidental overdose [Unknown]
  - Drug dependence [Unknown]
  - Road traffic accident [Fatal]
  - Sudden onset of sleep [Fatal]
  - Unevaluable event [Unknown]
  - Drug tolerance increased [Unknown]
  - Dyspnoea [Unknown]
  - Memory impairment [Unknown]
  - Activities of daily living impaired [Unknown]
